FAERS Safety Report 7600465-8 (Version None)
Quarter: 2011Q3

REPORT INFORMATION
  Report Type: 
  Country: None (occurrence: None)
  Receive Date: 20110706
  Receipt Date: 20110706
  Transmission Date: 20111222
  Serious: No
  Sender: FDA-Public Use
  Company Number: None

PATIENT
  Sex: Male

DRUGS (3)
  1. COPAXONE [Suspect]
     Dosage: DAILY SUBCUTANEOUS
     Route: 058
     Dates: start: 20050101, end: 20100501
  2. AVONEX [Suspect]
     Indication: MULTIPLE SCLEROSIS
     Dosage: QWEEK INTRAMUSCULAR
     Route: 030
     Dates: start: 20100501, end: 20110201
  3. EXTAVIA [Suspect]
     Dosage: EVERY OTHER DAY SUBCUTANEOUS
     Route: 058
     Dates: start: 20050101

REACTIONS (3)
  - DEPRESSED LEVEL OF CONSCIOUSNESS [None]
  - GLIOBLASTOMA MULTIFORME [None]
  - LETHARGY [None]
